FAERS Safety Report 8517150 (Version 4)
Quarter: 2014Q3

REPORT INFORMATION
  Report Type: Spontaneous
  Country: US (occurrence: US)
  Receive Date: 20120417
  Receipt Date: 20140827
  Transmission Date: 20150326
  Serious: Yes (Other)
  Sender: FDA-Public Use
  Company Number: US-ASTRAZENECA-2012SE08647

PATIENT
  Age: 60 Year
  Sex: Male
  Weight: 95.3 kg

DRUGS (3)
  1. NEXIUM [Suspect]
     Active Substance: ESOMEPRAZOLE MAGNESIUM
     Indication: GASTRITIS
     Route: 048
     Dates: start: 2000
  2. RHINOCORT AQUA [Suspect]
     Active Substance: BUDESONIDE
     Route: 045
  3. SYMBICORT [Suspect]
     Active Substance: BUDESONIDE\FORMOTEROL FUMARATE DIHYDRATE
     Indication: CHRONIC OBSTRUCTIVE PULMONARY DISEASE
     Dosage: 160/4.5 MCG, UNKNOWN FREQUENCY
     Route: 055
     Dates: start: 2007

REACTIONS (9)
  - Cataract [Unknown]
  - Joint injury [Unknown]
  - Feeling abnormal [Unknown]
  - Ankle fracture [Unknown]
  - Drug dose omission [Unknown]
  - Rib fracture [Unknown]
  - Malaise [Unknown]
  - Fall [Unknown]
  - Foot fracture [Unknown]
